FAERS Safety Report 4808729-8 (Version None)
Quarter: 2005Q4

REPORT INFORMATION
  Report Type: 
  Country: None (occurrence: None)
  Receive Date: 20051021
  Receipt Date: 20040223
  Transmission Date: 20060501
  Serious: No
  Sender: FDA-Public Use
  Company Number: EWC040338240

PATIENT
  Age: 83 Year
  Sex: Female

DRUGS (2)
  1. ZYPREXA [Suspect]
     Indication: ABNORMAL BEHAVIOUR
     Dosage: 5 MG DAY
     Dates: start: 20031202, end: 20031216
  2. ASPIRIN [Concomitant]

REACTIONS (1)
  - LEUKOPENIA [None]
